FAERS Safety Report 8055648-2 (Version None)
Quarter: 2012Q1

REPORT INFORMATION
  Report Type: 
  Country: None (occurrence: None)
  Receive Date: 20120112
  Receipt Date: 20111228
  Transmission Date: 20120608
  Serious: Yes (Other)
  Sender: FDA-Public Use
  Company Number: FK201103124

PATIENT
  Age: 68 Year
  Sex: Male

DRUGS (3)
  1. ZOLEDRONIC ACID [Suspect]
     Indication: PRODUCT USED FOR UNKNOWN INDICATION
     Dosage: 4 MG, EVERY WEEKS, INTRAVENOUS (NOT OTHERWISE SPECIFIED)
     Route: 042
  2. PREDNISONE TAB [Concomitant]
  3. PAMIDRONATE DISODIUM [Suspect]
     Indication: PRODUCT USED FOR UNKNOWN INDICATION
     Dosage: 90 MG, MONTHLY, INTRAVENOUS (NOT OTHERWISE SPECIFIED)
     Route: 042
     Dates: start: 20110101

REACTIONS (4)
  - FOOT FRACTURE [None]
  - STRESS FRACTURE [None]
  - PAIN IN EXTREMITY [None]
  - SPINAL DISORDER [None]
